FAERS Safety Report 8972150 (Version 5)
Quarter: 2014Q1

REPORT INFORMATION
  Report Type: Report from Study
  Country: CL (occurrence: CL)
  Receive Date: 20121218
  Receipt Date: 20140106
  Transmission Date: 20141002
  Serious: Yes (Hospitalization)
  Sender: FDA-Public Use
  Company Number: CL-BRISTOL-MYERS SQUIBB COMPANY-17196676

PATIENT
  Age: 45 Year
  Sex: Female

DRUGS (9)
  1. ORENCIA [Suspect]
     Indication: PSORIATIC ARTHROPATHY
     Dosage: 2ND:29NOV12?INT AUG2013, 23SEP13
     Route: 042
     Dates: start: 20121011
  2. METHOTREXATE [Concomitant]
  3. FOLIC ACID [Concomitant]
  4. DEFLAZACORT [Concomitant]
     Dosage: DEZARTAL
  5. ESTREVA [Concomitant]
     Dosage: GEL
  6. PROGESTERONE [Concomitant]
     Dosage: PROGENDO
  7. CALCIUM [Concomitant]
  8. PROFENID [Concomitant]
  9. TRAMAL [Concomitant]

REACTIONS (6)
  - Abdominal pain [Not Recovered/Not Resolved]
  - Groin pain [Not Recovered/Not Resolved]
  - Vulvovaginal mycotic infection [Unknown]
  - Nodule [Unknown]
  - Pain in extremity [Recovering/Resolving]
  - Drug ineffective [Unknown]
